FAERS Safety Report 12397267 (Version 1)
Quarter: 2016Q2

REPORT INFORMATION
  Report Type: Spontaneous
  Country: US (occurrence: US)
  Receive Date: 20160524
  Receipt Date: 20160524
  Transmission Date: 20160815
  Serious: No
  Sender: FDA-Public Use
  Company Number: US-PFIZER INC-2016234512

PATIENT
  Age: 72 Year
  Sex: Female

DRUGS (1)
  1. ARTHROTEC [Suspect]
     Active Substance: DICLOFENAC SODIUM\MISOPROSTOL
     Indication: ARTHRITIS
     Dosage: 50.02 MG, 1X/DAY
     Route: 048
     Dates: start: 201602, end: 201603

REACTIONS (2)
  - Neuralgia [Unknown]
  - Intentional product use issue [Unknown]
